FAERS Safety Report 11278939 (Version 2)
Quarter: 2015Q3

REPORT INFORMATION
  Report Type: Report from Study
  Country: IT (occurrence: IT)
  Receive Date: 20150717
  Receipt Date: 20150811
  Transmission Date: 20151125
  Serious: Yes (Life-Threatening, Hospitalization)
  Sender: FDA-Public Use
  Company Number: IT-ACTAVIS-2015-14964

PATIENT
  Age: 79 Year
  Sex: Male

DRUGS (15)
  1. INSULIN GLARGINE [Concomitant]
     Active Substance: INSULIN GLARGINE
     Indication: PRODUCT USED FOR UNKNOWN INDICATION
     Dosage: UNK
     Route: 065
     Dates: start: 1996
  2. IRINOTECAN [Suspect]
     Active Substance: IRINOTECAN
     Indication: RECTOSIGMOID CANCER STAGE IV
     Dosage: 272 MG, CYCLICAL
     Route: 042
     Dates: start: 20150520, end: 20150520
  3. FLUOROURACIL. [Suspect]
     Active Substance: FLUOROURACIL
     Indication: RECTOSIGMOID CANCER STAGE IV
     Dosage: 604 MG, CYCLICAL
     Route: 065
     Dates: start: 20150520, end: 20150520
  4. FLUOROURACIL. [Suspect]
     Active Substance: FLUOROURACIL
     Dosage: 604 MG, CYCLICAL
     Route: 040
     Dates: start: 20150413, end: 20150413
  5. SAMYR                              /00882301/ [Concomitant]
     Active Substance: METHIONINE
     Indication: PRODUCT USED FOR UNKNOWN INDICATION
     Dosage: UNK
     Route: 065
     Dates: start: 2012
  6. REPAGLINIDE. [Concomitant]
     Active Substance: REPAGLINIDE
     Indication: PRODUCT USED FOR UNKNOWN INDICATION
     Dosage: UNK
     Route: 065
     Dates: start: 1996
  7. LEVOFOLINATE SODIUM [Suspect]
     Active Substance: LEVOLEUCOVORIN DISODIUM
     Indication: RECTOSIGMOID CANCER STAGE IV
     Dosage: 189 MG, CYCLICAL
     Route: 041
     Dates: start: 20150520, end: 20150520
  8. AFLIBERCEPT [Suspect]
     Active Substance: AFLIBERCEPT
     Dosage: 300 MG, CYCLICAL
     Route: 042
     Dates: start: 20150413, end: 20150413
  9. FLUOROURACIL. [Suspect]
     Active Substance: FLUOROURACIL
     Dosage: 1814 MG, CYCLICAL
     Route: 041
     Dates: start: 20150413, end: 20150513
  10. AFLIBERCEPT [Suspect]
     Active Substance: AFLIBERCEPT
     Indication: RECTOSIGMOID CANCER STAGE IV
     Dosage: 300 MG, CYCLICAL
     Route: 042
     Dates: start: 20150520, end: 20150520
  11. LEVOFOLINATE SODIUM [Suspect]
     Active Substance: LEVOLEUCOVORIN DISODIUM
     Dosage: 302 MG, CYCLICAL
     Route: 041
     Dates: start: 20150413, end: 20150413
  12. ROPINIROLE. [Concomitant]
     Active Substance: ROPINIROLE
     Indication: PRODUCT USED FOR UNKNOWN INDICATION
     Dosage: UNK
     Route: 065
     Dates: start: 2012
  13. IRINOTECAN [Suspect]
     Active Substance: IRINOTECAN
     Dosage: 272 MG, CYCLICAL
     Route: 042
     Dates: start: 20150413, end: 20150413
  14. FLUOROURACIL. [Suspect]
     Active Substance: FLUOROURACIL
     Dosage: 1814 MG, CYCLICAL
     Route: 041
     Dates: start: 20150520, end: 20150520
  15. LANSOPRAZOLE. [Concomitant]
     Active Substance: LANSOPRAZOLE
     Indication: PRODUCT USED FOR UNKNOWN INDICATION
     Dosage: UNK
     Route: 065
     Dates: start: 2013

REACTIONS (1)
  - Arterial occlusive disease [Recovered/Resolved]

NARRATIVE: CASE EVENT DATE: 20150530
